FAERS Safety Report 18165751 (Version 1)
Quarter: 2020Q3

REPORT INFORMATION
  Report Type: Spontaneous
  Country: IN (occurrence: IN)
  Receive Date: 20200819
  Receipt Date: 20200819
  Transmission Date: 20201103
  Serious: Yes (Hospitalization, Other)
  Sender: FDA-Public Use
  Company Number: IN-CIPLA LTD.-2020IN05670

PATIENT

DRUGS (3)
  1. TELMISARTAN. [Suspect]
     Active Substance: TELMISARTAN
     Indication: HYPERTENSION
     Dosage: 40 MILLIGRAM, PER DAY
     Route: 065
     Dates: start: 20180126, end: 20180207
  2. METOPROLOL. [Suspect]
     Active Substance: METOPROLOL
     Indication: HYPERTENSION
     Dosage: 25 MILLIGRAM, PER DAY
     Route: 065
     Dates: start: 20180110
  3. CLOPIDOGREL AND ASPIRIN [Suspect]
     Active Substance: ASPIRIN\CLOPIDOGREL
     Indication: HYPERTENSION
     Dosage: 75 MG/75 MG, PER DAY
     Route: 065
     Dates: start: 20180110, end: 201802

REACTIONS (13)
  - Hepatic enzyme increased [Unknown]
  - Pain [Unknown]
  - Glossitis [Unknown]
  - Trismus [Unknown]
  - Mouth ulceration [Recovered/Resolved]
  - Red blood cell sedimentation rate increased [Unknown]
  - Dysphagia [Recovering/Resolving]
  - Angioedema [Recovered/Resolved]
  - Stomatitis [Recovered/Resolved]
  - Angular cheilitis [Recovered/Resolved]
  - Chronic gastritis [Unknown]
  - Eosinophil count increased [Unknown]
  - C-reactive protein increased [Unknown]

NARRATIVE: CASE EVENT DATE: 20180128
